FAERS Safety Report 17071810 (Version 1)
Quarter: 2019Q4

REPORT INFORMATION
  Report Type: Spontaneous
  Country: US (occurrence: US)
  Receive Date: 20191122
  Receipt Date: 20191122
  Transmission Date: 20200122
  Serious: Yes (Disabling)
  Sender: FDA-Public Use
  Company Number: None

PATIENT
  Age: 29 Year
  Sex: Male
  Weight: 80.1 kg

DRUGS (18)
  1. FULVIC ACID MINERALS [Concomitant]
  2. LIPOSOMAL GLUTATHIONE [Concomitant]
  3. OSOMAL GABA [Concomitant]
  4. NEPHURE [Concomitant]
  5. OPTIMAL ELECTROLYTE MIX [Concomitant]
  6. MAGNESIUM GLYCINATE [Concomitant]
     Active Substance: MAGNESIUM GLYCINATE
  7. ADVANCED CONNECTIVE TISSUE FORMULA [Concomitant]
  8. LEXAPRO [Concomitant]
     Active Substance: ESCITALOPRAM OXALATE
  9. PRODOVITE [Concomitant]
  10. CIPROFLOXACIN. [Suspect]
     Active Substance: CIPROFLOXACIN
     Indication: PROSTATITIS
     Dosage: ?          QUANTITY:16 TABLET(S);?
     Route: 048
     Dates: start: 20180925, end: 20181002
  11. PHOSPHATIDYLSERINE [Concomitant]
  12. PROBIOTICS [Concomitant]
     Active Substance: PROBIOTICS NOS
  13. SEROQUEL [Concomitant]
     Active Substance: QUETIAPINE FUMARATE
  14. VITAMIN B6 [Concomitant]
     Active Substance: PYRIDOXINE HYDROCHLORIDE
  15. LIPOSOMAL VITAMIN C [Concomitant]
  16. I - THEANINE [Concomitant]
  17. DIGESTIVE ENZYMES [Concomitant]
     Active Substance: UNSPECIFIED INGREDIENT
  18. MAGNESIUM THREONATE [Concomitant]

REACTIONS (17)
  - Hypoaesthesia [None]
  - Fatigue [None]
  - Joint noise [None]
  - Panic attack [None]
  - Suicidal ideation [None]
  - Anxiety [None]
  - Ill-defined disorder [None]
  - Myalgia [None]
  - Akathisia [None]
  - Feeling abnormal [None]
  - Insomnia [None]
  - Depersonalisation/derealisation disorder [None]
  - Depression [None]
  - Arthralgia [None]
  - Tinnitus [None]
  - Muscle twitching [None]
  - Obsessive-compulsive disorder [None]

NARRATIVE: CASE EVENT DATE: 20181004
